FAERS Safety Report 6903765-X (Version None)
Quarter: 2010Q3

REPORT INFORMATION
  Report Type: 
  Country: None (occurrence: None)
  Receive Date: 20100804
  Receipt Date: 20081216
  Transmission Date: 20110219
  Serious: No
  Sender: FDA-Public Use
  Company Number: US-PFIZER INC-2008093151

PATIENT
  Sex: Female
  Weight: 87.528 kg

DRUGS (8)
  1. LYRICA [Suspect]
     Indication: NEURALGIA
     Dosage: UNK
  2. AMITRIPTYLINE [Concomitant]
     Dosage: 50 MG, 1X/DAY
     Route: 048
  3. ISOSORBIDE DINITRATE [Concomitant]
     Dosage: 15 MG, 2X/DAY
     Route: 048
  4. PIOGLITAZONE HYDROCHLORIDE [Concomitant]
     Dosage: 30 MG, 1X/DAY
     Route: 048
  5. FUROSEMIDE [Concomitant]
     Dosage: 20 MG, 1X/DAY
     Route: 048
  6. PARACETAMOL [Concomitant]
     Dosage: 1300 MG, 2X/DAY
     Route: 048
  7. SERETIDE MITE [Concomitant]
     Dosage: UNK
  8. NAPROXEN SODIUM [Concomitant]
     Route: 048

REACTIONS (1)
  - EUPHORIC MOOD [None]
